FAERS Safety Report 9270034 (Version 2)
Quarter: 2013Q2

REPORT INFORMATION
  Report Type: Spontaneous
  Country: JP (occurrence: None)
  Receive Date: 20130502
  Receipt Date: 20130628
  Transmission Date: 20140414
  Serious: Yes (Death, Hospitalization)
  Sender: FDA-Public Use
  Company Number: SYM-2013-03115

PATIENT
  Age: 69 Year
  Sex: Male

DRUGS (8)
  1. FLUOROURACIL [Suspect]
     Indication: RECTAL CANCER
     Dates: start: 2010, end: 2010
  2. FLUOROURACIL [Suspect]
     Indication: METASTASES TO LIVER
     Dates: start: 2010, end: 2010
  3. OXALIPLATIN [Suspect]
     Indication: RECTAL CANCER
     Route: 041
     Dates: start: 2010
  4. OXALIPLATIN [Suspect]
     Indication: METASTASES TO LIVER
     Route: 041
     Dates: start: 2010
  5. ERBITUX [Suspect]
     Indication: RECTAL CANCER
     Dates: start: 2010, end: 2010
  6. ERBITUX [Suspect]
     Indication: METASTASES TO LIVER
     Dates: start: 2010, end: 2010
  7. LEUCOVORIN [Suspect]
     Indication: RECTAL CANCER
     Dates: start: 2010
  8. LEUCOVORIN [Suspect]
     Indication: METASTASES TO LIVER
     Dates: start: 2010

REACTIONS (4)
  - Interstitial lung disease [None]
  - Respiratory distress [None]
  - Condition aggravated [None]
  - Respiratory failure [None]
